FAERS Safety Report 5904429-1 (Version None)
Quarter: 2008Q4

REPORT INFORMATION
  Report Type: 
  Country: None (occurrence: None)
  Receive Date: 20081001
  Receipt Date: 20080930
  Transmission Date: 20090506
  Serious: Yes (Other)
  Sender: FDA-Public Use
  Company Number: US-BAYER-200829331NA

PATIENT
  Age: 24 Year
  Sex: Female

DRUGS (1)
  1. MIRENA [Suspect]
     Indication: CONTRACEPTION
     Route: 015
     Dates: start: 20060809

REACTIONS (12)
  - BALANCE DISORDER [None]
  - INSOMNIA [None]
  - MELANOCYTIC NAEVUS [None]
  - NIPPLE PAIN [None]
  - PELVIC INFLAMMATORY DISEASE [None]
  - POLLAKIURIA [None]
  - POST PROCEDURAL HAEMORRHAGE [None]
  - PREGNANCY TEST NEGATIVE [None]
  - PREGNANCY TEST URINE POSITIVE [None]
  - PROCEDURAL PAIN [None]
  - SKIN DISCOLOURATION [None]
  - VAGINAL HAEMORRHAGE [None]
